FAERS Safety Report 24174428 (Version 2)
Quarter: 2024Q3

REPORT INFORMATION
  Report Type: Spontaneous
  Country: RO (occurrence: RO)
  Receive Date: 20240805
  Receipt Date: 20240930
  Transmission Date: 20241017
  Serious: Yes (Death, Hospitalization, Other)
  Sender: AMGEN
  Company Number: RO-AMGEN-ROUSP2024152739

PATIENT

DRUGS (1)
  1. MVASI [Suspect]
     Active Substance: BEVACIZUMAB-AWWB
     Indication: Neoplasm malignant
     Dosage: UNK
     Route: 065

REACTIONS (19)
  - Embolism [Fatal]
  - Sepsis [Fatal]
  - Toxicity to various agents [Unknown]
  - Thrombocytopenia [Unknown]
  - Gastrointestinal perforation [Unknown]
  - Cardiovascular disorder [Unknown]
  - Perforation [Unknown]
  - Fistula [Unknown]
  - Gingival bleeding [Unknown]
  - Hypertension [Unknown]
  - Proteinuria [Unknown]
  - Abdominal pain [Unknown]
  - Nausea [Unknown]
  - Vomiting [Unknown]
  - Fatigue [Unknown]
  - Diarrhoea [Unknown]
  - Infusion related reaction [Unknown]
  - Impaired healing [Unknown]
  - Epistaxis [Unknown]
